FAERS Safety Report 8610720-0 (Version None)
Quarter: 2012Q3

REPORT INFORMATION
  Report Type: 
  Country: None (occurrence: None)
  Receive Date: 20120822
  Receipt Date: 20120814
  Transmission Date: 20120928
  Serious: Yes (Other)
  Sender: FDA-Public Use
  Company Number: US-US-EMD SERONO, INC.-7049848

PATIENT
  Sex: Female
  Weight: 68 kg

DRUGS (5)
  1. REBIF [Suspect]
     Indication: MULTIPLE SCLEROSIS
     Route: 058
     Dates: start: 20100922, end: 20110316
  2. UNSPECIFIED ANALGESIC [Concomitant]
     Indication: PREMEDICATION
  3. BACLOFEN [Concomitant]
     Indication: MUSCLE SPASMS
     Route: 048
     Dates: start: 20110218
  4. FLOMAX [Concomitant]
     Indication: BLADDER DYSFUNCTION
     Route: 048
     Dates: start: 20120319
  5. CYMBALTA [Concomitant]
     Indication: PRODUCT USED FOR UNKNOWN INDICATION
     Route: 048
     Dates: start: 20120308

REACTIONS (3)
  - HYPOTENSION [None]
  - INJECTION SITE PAIN [None]
  - SARCOIDOSIS [None]
